FAERS Safety Report 8847378 (Version 1)
Quarter: 2012Q4

REPORT INFORMATION
  Report Type: 
  Country: GB (occurrence: GB)
  Receive Date: 20121018
  Receipt Date: 20121018
  Transmission Date: 20130627
  Serious: Yes (Other)
  Sender: FDA-Public Use
  Company Number: GB-ELI_LILLY_AND_COMPANY-GB201210001699

PATIENT
  Age: 6 Month
  Sex: Female

DRUGS (2)
  1. FLUOXETINE [Suspect]
     Indication: DEPRESSION
     Dosage: 20 mg, unknown
     Route: 064
  2. FLUOXETINE [Concomitant]
     Indication: DEPRESSION
     Dosage: 20 mg, UNK
     Route: 064

REACTIONS (3)
  - Kawasaki^s disease [Unknown]
  - Foetal exposure during pregnancy [Recovered/Resolved]
  - Maternal drugs affecting foetus [None]
